FAERS Safety Report 5345081-6 (Version None)
Quarter: 2007Q2

REPORT INFORMATION
  Report Type: 
  Country: None (occurrence: None)
  Receive Date: 20070601
  Receipt Date: 20070530
  Transmission Date: 20071010
  Serious: Yes (Death, Hospitalization)
  Sender: FDA-Public Use
  Company Number: TCI2007A02551

PATIENT
  Age: 74 Year
  Sex: Male

DRUGS (4)
  1. LANSOPRAZOLE [Suspect]
     Indication: ULCER HAEMORRHAGE
     Dosage: 30 MG (30 MG, 1 D) , INTRAVENOUS DRIP
     Route: 041
     Dates: start: 20070525, end: 20070525
  2. SESDEN (TIMEPIDIUM BROMIDE) (UNKNOWN) [Suspect]
  3. BUFFERIN  (BUFFERIN   /01519201/) (TABLETS) [Concomitant]
  4. NINOBARUCIN (NISOLDIPINE) (TABLETS) [Concomitant]

REACTIONS (1)
  - ACUTE MYOCARDIAL INFARCTION [None]
